FAERS Safety Report 5027258-2 (Version None)
Quarter: 2006Q2

REPORT INFORMATION
  Report Type: 
  Country: None (occurrence: None)
  Receive Date: 20060609
  Receipt Date: 20060511
  Transmission Date: 20061013
  Serious: Yes (Hospitalization)
  Sender: FDA-Public Use
  Company Number: 219797

PATIENT
  Age: 54 Year
  Sex: Male

DRUGS (9)
  1. AVASTIN [Suspect]
     Indication: COLORECTAL CANCER
     Dosage: 600 MG, Q3W, INTRAVENOUS
     Route: 042
     Dates: start: 20050928
  2. CAPECITABINE (CAPECITABINE) [Suspect]
     Indication: COLORECTAL CANCER
     Dosage: 2000 MG, BID, ORAL
     Route: 048
     Dates: start: 20050928
  3. OXALIPLATIN (OXALIPLATIN) [Suspect]
     Indication: COLORECTAL CANCER
     Dosage: 260 MG, Q3W, INTRAVENOUS
     Route: 042
     Dates: start: 20050928
  4. FERROFUMARAAT (FERROUS FUMARATE) [Concomitant]
  5. SOTALOL HYDROCHLORIDE [Concomitant]
  6. PRIMPERAN ELIXIR [Concomitant]
  7. LOPERAMIDE [Concomitant]
  8. ASCAL (CARBASPIRIN CALCIUM) [Concomitant]
  9. PYRIDOXINE HCL [Concomitant]

REACTIONS (7)
  - ARRHYTHMIA SUPRAVENTRICULAR [None]
  - BLOOD CREATININE INCREASED [None]
  - DEHYDRATION [None]
  - DIARRHOEA [None]
  - NAUSEA [None]
  - RECTAL HAEMORRHAGE [None]
  - VOMITING [None]
